FAERS Safety Report 22336267 (Version 1)
Quarter: 2023Q2

REPORT INFORMATION
  Report Type: Spontaneous
  Country: FR (occurrence: FR)
  Receive Date: 20230518
  Receipt Date: 20230518
  Transmission Date: 20230722
  Serious: Yes (Hospitalization)
  Sender: FDA-Public Use
  Company Number: None

PATIENT
  Age: 28 Year
  Sex: Male

DRUGS (3)
  1. DIAZEPAM [Suspect]
     Active Substance: DIAZEPAM
     Indication: Product used for unknown indication
     Dosage: 30 TABS X 10 MG
     Route: 065
     Dates: start: 20230124, end: 20230124
  2. MIDOMAFETAMINE [Suspect]
     Active Substance: MIDOMAFETAMINE
     Indication: Product used for unknown indication
     Route: 065
  3. 3-METHYLMETHCATHINONE [Suspect]
     Active Substance: 3-METHYLMETHCATHINONE
     Indication: Product used for unknown indication
     Route: 065

REACTIONS (3)
  - Coma [Recovered/Resolved]
  - Drug abuse [Not Recovered/Not Resolved]
  - Respiratory distress [Recovered/Resolved]

NARRATIVE: CASE EVENT DATE: 20221001
